FAERS Safety Report 25525467 (Version 1)
Quarter: 2025Q3

REPORT INFORMATION
  Report Type: Spontaneous
  Country: US (occurrence: None)
  Receive Date: 20250705
  Receipt Date: 20250705
  Transmission Date: 20251020
  Serious: Yes (Hospitalization)
  Sender: FDA-CTU
  Company Number: None

PATIENT
  Sex: Female

DRUGS (1)
  1. RINVOQ [Suspect]
     Active Substance: UPADACITINIB
     Indication: Rheumatoid arthritis
     Dosage: 15 MG DALY ORAL
     Route: 048
     Dates: start: 20250312

REACTIONS (5)
  - Joint swelling [None]
  - Purulence [None]
  - Skin weeping [None]
  - Impaired healing [None]
  - Osteomyelitis [None]
